FAERS Safety Report 5881924-5 (Version None)
Quarter: 2008Q3

REPORT INFORMATION
  Report Type: 
  Country: None (occurrence: None)
  Receive Date: 20080912
  Receipt Date: 20080717
  Transmission Date: 20090109
  Serious: No
  Sender: FDA-Public Use
  Company Number: US-ABBOTT-08P-163-0463884-00

PATIENT
  Sex: Female
  Weight: 104.42 kg

DRUGS (5)
  1. HUMIRA [Suspect]
     Indication: PSORIATIC ARTHROPATHY
     Route: 058
     Dates: start: 20080101, end: 20080601
  2. METHOTREXATE [Concomitant]
     Indication: DRUG USE FOR UNKNOWN INDICATION
     Dosage: 2.5 MILLIGRAMS X 2 ON FRIDAY AND SATURDAY
  3. CORTISONE [Concomitant]
     Indication: PSORIASIS
  4. RAMIPRIL [Concomitant]
     Indication: HYPERTENSION
  5. FOLGARD [Concomitant]
     Indication: ASTHENIA

REACTIONS (5)
  - BRONCHITIS [None]
  - EAR INFECTION [None]
  - IMMUNE SYSTEM DISORDER [None]
  - MALAISE [None]
  - SINUSITIS [None]
